FAERS Safety Report 9688133 (Version 1)
Quarter: 2013Q4

REPORT INFORMATION
  Report Type: Spontaneous
  Country: FR (occurrence: None)
  Receive Date: 20131112
  Receipt Date: 20131112
  Transmission Date: 20140711
  Serious: Yes (Death)
  Sender: FDA-Public Use
  Company Number: 2013FR0414

PATIENT
  Age: 80 Year
  Sex: 0

DRUGS (1)
  1. ANAKINRA [Suspect]
     Indication: SCHNITZLER^S SYNDROME

REACTIONS (1)
  - Death [None]
